FAERS Safety Report 5510952-4 (Version None)
Quarter: 2007Q4

REPORT INFORMATION
  Report Type: 
  Country: None (occurrence: None)
  Receive Date: 20071030
  Receipt Date: 20070705
  Transmission Date: 20080405
  Serious: Yes (Other)
  Sender: FDA-Public Use
  Company Number: HQWYE924506JUL07

PATIENT
  Sex: Female

DRUGS (3)
  1. PREMARIN [Suspect]
  2. COUMADIN [Concomitant]
  3. TOPROL-XL [Concomitant]

REACTIONS (1)
  - BREAST CANCER [None]
